FAERS Safety Report 6823217-5 (Version None)
Quarter: 2010Q3

REPORT INFORMATION
  Report Type: 
  Country: None (occurrence: None)
  Receive Date: 20100708
  Receipt Date: 20100705
  Transmission Date: 20110219
  Serious: Yes (Other)
  Sender: FDA-Public Use
  Company Number: BR-B.I. PHARMACEUTICALS,INC./RIDGEFIELD-2010-BR-01100BR

PATIENT
  Sex: Female

DRUGS (1)
  1. ATENSINA [Suspect]
     Indication: HYPERTENSION
     Dosage: 0.45 MG
     Route: 048
     Dates: start: 20040101

REACTIONS (1)
  - HYPERTENSIVE CRISIS [None]
